FAERS Safety Report 5665049-X (Version None)
Quarter: 2008Q1

REPORT INFORMATION
  Report Type: 
  Country: None (occurrence: None)
  Receive Date: 20080314
  Receipt Date: 20080304
  Transmission Date: 20080703
  Serious: Yes (Other)
  Sender: FDA-Public Use
  Company Number: JP-PFIZER INC-2008020983

PATIENT
  Age: 52 Year
  Sex: Male

DRUGS (1)
  1. ZITHROMAX [Suspect]
     Dosage: DAILY DOSE:500MG
     Route: 048
     Dates: start: 20080228, end: 20080229

REACTIONS (3)
  - CHEST PAIN [None]
  - SWOLLEN TONGUE [None]
  - URTICARIA [None]
